FAERS Safety Report 7023237-4 (Version None)
Quarter: 2010Q3

REPORT INFORMATION
  Report Type: 
  Country: None (occurrence: None)
  Receive Date: 20100930
  Receipt Date: 20100924
  Transmission Date: 20110219
  Serious: Yes (Death, Hospitalization)
  Sender: FDA-Public Use
  Company Number: US-GILEAD-2010-0031974

PATIENT
  Sex: Female

DRUGS (18)
  1. LETAIRIS [Suspect]
     Indication: PULMONARY HYPERTENSION
     Route: 048
     Dates: start: 20100905
  2. SPIRONOLACTONE [Suspect]
  3. KLOR-CON [Suspect]
  4. REVATIO [Concomitant]
  5. TRACLEER [Concomitant]
     Indication: PULMONARY HYPERTENSION
     Route: 048
     Dates: start: 20100208, end: 20100816
  6. WARFARIN SODIUM [Concomitant]
  7. ALENDRONATE SODIUM [Concomitant]
  8. OMEPRAZOLE [Concomitant]
  9. METOLAZONE [Concomitant]
  10. FUROSEMIDE [Concomitant]
  11. PREDNISONE [Concomitant]
  12. SPIRIVA [Concomitant]
  13. SEREVENT [Concomitant]
  14. QVAR 40 [Concomitant]
  15. ALBUTEROL [Concomitant]
  16. IPRATROPIUM BROMIDE [Concomitant]
  17. SULFAZINE [Concomitant]
  18. HYDROXYCHLOROQUINE [Concomitant]

REACTIONS (5)
  - CARDIAC FAILURE [None]
  - CARDIO-RESPIRATORY ARREST [None]
  - CARDIOGENIC SHOCK [None]
  - DEEP VEIN THROMBOSIS [None]
  - HYPERKALAEMIA [None]
